FAERS Safety Report 8781663 (Version 2)
Quarter: 2012Q4

REPORT INFORMATION
  Report Type: Report from Study
  Country: US (occurrence: US)
  Receive Date: 20120913
  Receipt Date: 20121009
  Transmission Date: 20130627
  Serious: Yes (Hospitalization)
  Sender: FDA-Public Use
  Company Number: US-JNJFOC-20120904341

PATIENT
  Age: 17 Year
  Sex: Female
  Weight: 59.7 kg

DRUGS (7)
  1. REMICADE [Suspect]
     Indication: INFLAMMATORY BOWEL DISEASE
     Route: 042
     Dates: start: 20120813
  2. REMICADE [Suspect]
     Indication: INFLAMMATORY BOWEL DISEASE
     Route: 042
     Dates: start: 20120625
  3. REMICADE [Suspect]
     Indication: INFLAMMATORY BOWEL DISEASE
     Route: 042
     Dates: start: 20080815
  4. AUGMENTIN [Suspect]
     Indication: SINUSITIS
     Dates: start: 20120808
  5. NEXIUM [Concomitant]
  6. ALLEGRA [Concomitant]
  7. MVI [Concomitant]

REACTIONS (1)
  - Crohn^s disease [Recovered/Resolved]
